FAERS Safety Report 21722558 (Version 2)
Quarter: 2023Q1

REPORT INFORMATION
  Report Type: Spontaneous
  Country: US (occurrence: US)
  Receive Date: 20221213
  Receipt Date: 20230118
  Transmission Date: 20230417
  Serious: No
  Sender: FDA-Public Use
  Company Number: US-PFIZER INC-202201364756

PATIENT
  Age: 64 Year
  Sex: Female

DRUGS (7)
  1. PAXLOVID [Suspect]
     Active Substance: NIRMATRELVIR\RITONAVIR
     Indication: COVID-19 treatment
     Dosage: UNK
     Dates: start: 20221130, end: 20221204
  2. ZYRTEC [Concomitant]
     Active Substance: CETIRIZINE HYDROCHLORIDE
     Dosage: UNK
  3. REPATHA [Concomitant]
     Active Substance: EVOLOCUMAB
     Dosage: UNK
  4. SYMBICORT [Concomitant]
     Active Substance: BUDESONIDE\FORMOTEROL FUMARATE DIHYDRATE
     Dosage: UNK
  5. ZETIA [Concomitant]
     Active Substance: EZETIMIBE
     Dosage: UNK
  6. BYSTOLIC [Concomitant]
     Active Substance: NEBIVOLOL HYDROCHLORIDE
     Dosage: UNK
  7. ASPIRIN [Concomitant]
     Active Substance: ASPIRIN
     Dosage: UNK

REACTIONS (1)
  - Symptom recurrence [Unknown]

NARRATIVE: CASE EVENT DATE: 20221209
